FAERS Safety Report 8339470-5 (Version None)
Quarter: 2012Q2

REPORT INFORMATION
  Report Type: 
  Country: None (occurrence: None)
  Receive Date: 20120507
  Receipt Date: 20120427
  Transmission Date: 20120825
  Serious: Yes (Hospitalization)
  Sender: FDA-Public Use
  Company Number: GB-UCBSA-048359

PATIENT
  Age: 29 Year
  Sex: Female

DRUGS (19)
  1. WARFARIN SODIUM [Concomitant]
     Dosage: EACH EVENING
     Route: 048
  2. VIMPAT [Suspect]
     Indication: EPILEPSY
     Dosage: MORNING AND EVENING
  3. VIMPAT [Suspect]
     Dosage: MORNING AND EVENING, DAYS GIVEN-28
  4. ACETAMINOPHEN [Concomitant]
     Dosage: 500 MG, MAXIMUM 6 ALLOWED, 2 FOUR TIMES A DAY WHEN REQUIRED, SOLUBLE TABLET
     Route: 048
  5. ACETAZOLAMIDE [Concomitant]
  6. ACETAZOLAMIDE [Concomitant]
     Dosage: INCREASING DOSE
     Dates: start: 20090514
  7. SODIUM CROMOGLICATE [Concomitant]
     Dosage: 2 %, 1 DROP
  8. ACETAZOLAMIDE [Concomitant]
     Route: 048
  9. ACYCLOVIR [Concomitant]
     Dosage: TO BE APPLIED X5 PER DAY FR 5 DAYS
  10. DIAZEPAM [Concomitant]
     Dosage: RECTAL TUBES 10 MG AS DIRECTED
  11. TEGRETOL [Concomitant]
     Dates: end: 20120101
  12. LACTULOSE [Concomitant]
     Route: 048
  13. ADCAL-D3 [Concomitant]
     Dosage: TAKE ONE TWICE DAILY
  14. TEGRETOL [Concomitant]
     Dosage: 200 MG BD(MORNING AND EVENING), 300 MG BD (LUNCH AND NIGHT)
     Route: 048
     Dates: start: 20120101
  15. SENNA-MINT WAF [Concomitant]
     Dosage: 1 TABLET AT NIGHT WHEN REQUIRED,DAYS GIVEN 28
     Route: 048
  16. CODEINE LINCTUS, BP [Concomitant]
     Dosage: FOUR TIMES A DAY
     Route: 048
  17. CLOBAZAM [Concomitant]
     Route: 048
  18. MOVIPREP [Concomitant]
     Dosage: 1 SACHET TWICE A DAY
     Route: 048
  19. WATER STERILE [Concomitant]
     Route: 048

REACTIONS (1)
  - CEREBROVASCULAR ACCIDENT [None]
